FAERS Safety Report 4553382-4 (Version None)
Quarter: 2005Q1

REPORT INFORMATION
  Report Type: 
  Country: None (occurrence: None)
  Receive Date: 20050112
  Receipt Date: 20041224
  Transmission Date: 20050727
  Serious: No
  Sender: FDA-Public Use
  Company Number: JP_041205468

PATIENT
  Age: 62 Year
  Sex: Female

DRUGS (4)
  1. VANCOMYCIN [Suspect]
     Indication: PYREXIA
     Dates: start: 20040527, end: 20040607
  2. PAZUFLOXACIN [Concomitant]
  3. CEFPIROME [Concomitant]
  4. TAZOCIN [Concomitant]

REACTIONS (4)
  - EOSINOPHIL PERCENTAGE INCREASED [None]
  - NEUTROPHIL PERCENTAGE DECREASED [None]
  - PYREXIA [None]
  - WHITE BLOOD CELL COUNT DECREASED [None]
